FAERS Safety Report 8765702 (Version 2)
Quarter: 2012Q4

REPORT INFORMATION
  Report Type: 
  Country: US (occurrence: US)
  Receive Date: 20120903
  Receipt Date: 20120903
  Transmission Date: 20130627
  Serious: Yes (Other)
  Sender: FDA-Public Use
  Company Number: PHEH2012US013746

PATIENT
  Age: 45 Year
  Sex: Female
  Weight: 98.41 kg

DRUGS (12)
  1. GILENYA [Suspect]
     Indication: RELAPSING-REMITTING MULTIPLE SCLEROSIS
     Dosage: 0.5 mg, QD
     Route: 048
     Dates: start: 20120711
  2. ADDERALL [Concomitant]
  3. DURAGESIC [Concomitant]
  4. EFFEXOR [Concomitant]
  5. KLONOPIN [Concomitant]
  6. MOBIC [Concomitant]
  7. PREDNISONE [Concomitant]
  8. SOMA [Concomitant]
  9. TOPAMAX [Concomitant]
  10. VESICARE [Concomitant]
  11. ZANAFLEX [Concomitant]
  12. ZESTORETIC [Concomitant]

REACTIONS (18)
  - Pain [Not Recovered/Not Resolved]
  - Blood pressure decreased [Recovering/Resolving]
  - Musculoskeletal pain [Not Recovered/Not Resolved]
  - Neck pain [Not Recovered/Not Resolved]
  - Sensory loss [Not Recovered/Not Resolved]
  - Spinal pain [Not Recovered/Not Resolved]
  - Visual field defect [Not Recovered/Not Resolved]
  - Areflexia [Not Recovered/Not Resolved]
  - Balance disorder [Not Recovered/Not Resolved]
  - Fatigue [Not Recovered/Not Resolved]
  - Arthralgia [Not Recovered/Not Resolved]
  - Dysgraphia [Not Recovered/Not Resolved]
  - Visual impairment [Not Recovered/Not Resolved]
  - Pain in extremity [Not Recovered/Not Resolved]
  - Heart rate decreased [Recovered/Resolved]
  - Feeling jittery [Recovered/Resolved]
  - Nervousness [Recovered/Resolved]
  - Eye pain [Not Recovered/Not Resolved]
